FAERS Safety Report 10766757 (Version 1)
Quarter: 2015Q1

REPORT INFORMATION
  Report Type: Spontaneous
  Country: SE (occurrence: SE)
  Receive Date: 20150205
  Receipt Date: 20150205
  Transmission Date: 20150721
  Serious: Yes (Other)
  Sender: FDA-Public Use
  Company Number: SE-BAUSCH-BL-2015-002030

PATIENT
  Age: 67 Year
  Sex: Female

DRUGS (3)
  1. WARAN [Concomitant]
     Active Substance: WARFARIN SODIUM
     Indication: PRODUCT USED FOR UNKNOWN INDICATION
  2. ISOPTO-MAXIDEX [Concomitant]
     Indication: PRODUCT USED FOR UNKNOWN INDICATION
  3. YELLOX 0.9 MG/ML EYE DROPS, SOLUTION [Suspect]
     Active Substance: BROMFENAC SODIUM
     Indication: CATARACT
     Dosage: 1-2 GTT
     Dates: start: 20140626, end: 20140712

REACTIONS (3)
  - Heart rate increased [Recovering/Resolving]
  - Hypertension [Recovering/Resolving]
  - Atrial fibrillation [Recovering/Resolving]

NARRATIVE: CASE EVENT DATE: 20140703
